FAERS Safety Report 13814061 (Version 3)
Quarter: 2017Q3

REPORT INFORMATION
  Report Type: Report from Study
  Country: IT (occurrence: IT)
  Receive Date: 20170731
  Receipt Date: 20170821
  Transmission Date: 20171127
  Serious: Yes (Hospitalization)
  Sender: FDA-Public Use
  Company Number: IT-ACCORD-056432

PATIENT
  Age: 38 Year
  Sex: Male

DRUGS (2)
  1. ESCITALOPRAM [Suspect]
     Active Substance: ESCITALOPRAM OXALATE
     Route: 048
     Dates: start: 20170624, end: 20170624
  2. DELORAZEPAM [Suspect]
     Active Substance: DELORAZEPAM
     Dosage: 1 DF TOTAL
     Route: 048
     Dates: start: 20170624, end: 20170624

REACTIONS (5)
  - Drug abuse [Unknown]
  - Intentional self-injury [Unknown]
  - Aphasia [Recovered/Resolved]
  - Dysarthria [Recovered/Resolved]
  - Sopor [Recovered/Resolved]

NARRATIVE: CASE EVENT DATE: 20170624
